FAERS Safety Report 12729605 (Version 3)
Quarter: 2016Q4

REPORT INFORMATION
  Report Type: Spontaneous
  Country: US (occurrence: US)
  Receive Date: 20160909
  Receipt Date: 20161005
  Transmission Date: 20170207
  Serious: Yes (Hospitalization)
  Sender: FDA-Public Use
  Company Number: US-BRACCO-013896

PATIENT
  Sex: Female

DRUGS (1)
  1. ISOVUE-M [Suspect]
     Active Substance: IOPAMIDOL
     Indication: SPINAL MYELOGRAM
     Dosage: 1 VIAL
     Route: 037
     Dates: start: 20160810, end: 20160810

REACTIONS (2)
  - Product contamination microbial [Unknown]
  - Meningitis bacterial [Unknown]

NARRATIVE: CASE EVENT DATE: 20160813
